FAERS Safety Report 12520861 (Version 2)
Quarter: 2016Q3

REPORT INFORMATION
  Report Type: Spontaneous
  Country: NL (occurrence: NL)
  Receive Date: 20160701
  Receipt Date: 20160802
  Transmission Date: 20161109
  Serious: Yes (Other)
  Sender: FDA-Public Use
  Company Number: NL-ACTAVIS-2016-14220

PATIENT
  Age: 10 Year
  Sex: Female

DRUGS (2)
  1. MIDAZOLAM [Concomitant]
     Active Substance: MIDAZOLAM\MIDAZOLAM HYDROCHLORIDE
     Indication: PRODUCT USED FOR UNKNOWN INDICATION
     Dosage: UNK;
     Route: 065
  2. LEVETIRACETAM ACTAVIS GROUP [Suspect]
     Active Substance: LEVETIRACETAM
     Indication: EPILEPSY
     Dosage: 2X3 ML, DAILY
     Route: 065
     Dates: start: 20160620

REACTIONS (4)
  - Seizure like phenomena [Recovered/Resolved]
  - Asthenia [Recovered/Resolved]
  - Salivary hypersecretion [Recovered/Resolved]
  - Speech disorder [Recovered/Resolved]
